FAERS Safety Report 23572517 (Version 1)
Quarter: 2024Q1

REPORT INFORMATION
  Report Type: Spontaneous
  Country: US (occurrence: US)
  Receive Date: 20240227
  Receipt Date: 20240227
  Transmission Date: 20240409
  Serious: Yes (Other)
  Sender: FDA-Public Use
  Company Number: US-BAYER-2024A028037

PATIENT
  Age: 13 Year
  Sex: Male

DRUGS (3)
  1. KOVALTRY [Suspect]
     Active Substance: ANTIHEMOPHILIC FACTOR, HUMAN RECOMBINANT
     Indication: Haemorrhage
     Dosage: 2315 UNITS, INFUSION
  2. KOVALTRY [Suspect]
     Active Substance: ANTIHEMOPHILIC FACTOR, HUMAN RECOMBINANT
     Indication: Haemorrhage
     Dosage: 1ST DOSE (2 DOSES OF KOVALTRY WERE GIVEN)
  3. KOVALTRY [Suspect]
     Active Substance: ANTIHEMOPHILIC FACTOR, HUMAN RECOMBINANT
     Indication: Haemorrhage
     Dosage: 2ND DOSE (2 DOSES OF KOVALTRY WERE GIVEN)1ST DOSE (2 DOSES OF KOVALTRY WERE GIVEN)

REACTIONS (2)
  - Haemorrhage [Recovered/Resolved]
  - Joint injury [None]

NARRATIVE: CASE EVENT DATE: 20240212
